FAERS Safety Report 22627886 (Version 3)
Quarter: 2024Q1

REPORT INFORMATION
  Report Type: Report from Study
  Country: PT (occurrence: PT)
  Receive Date: 20230622
  Receipt Date: 20240130
  Transmission Date: 20240409
  Serious: Yes (Hospitalization, Other)
  Sender: FDA-Public Use
  Company Number: PT-Merck Healthcare KGaA-2023455788

PATIENT
  Sex: Male

DRUGS (1)
  1. REBIF [Suspect]
     Active Substance: INTERFERON BETA-1A
     Indication: Multiple sclerosis
     Route: 058
     Dates: start: 20200930

REACTIONS (3)
  - Intestinal polyp [Not Recovered/Not Resolved]
  - Colon cancer [Recovering/Resolving]
  - Colostomy closure [Not Recovered/Not Resolved]

NARRATIVE: CASE EVENT DATE: 20230401
